FAERS Safety Report 10417780 (Version 1)
Quarter: 2014Q2

REPORT INFORMATION
  Report Type: Spontaneous
  Country: US (occurrence: None)
  Receive Date: 20140609
  Receipt Date: 20140609
  Transmission Date: 20141212
  Serious: No
  Sender: FDA-Public Use
  Company Number: 2014TUS001225

PATIENT
  Age: 6 Decade
  Sex: 0

DRUGS (1)
  1. BRINTELLIX [Suspect]
     Indication: MAJOR DEPRESSION
     Dosage: 10 MG PO, QD
     Route: 048
     Dates: end: 20140219

REACTIONS (1)
  - Pruritus generalised [None]
